FAERS Safety Report 5281776-0 (Version None)
Quarter: 2007Q1

REPORT INFORMATION
  Report Type: 
  Country: None (occurrence: None)
  Receive Date: 20070330
  Receipt Date: 20070323
  Transmission Date: 20070707
  Serious: Yes (Life-Threatening, Hospitalization)
  Sender: FDA-Public Use
  Company Number: DK-GLAXOSMITHKLINE-B0464167A

PATIENT
  Age: 4 Year
  Sex: Male
  Weight: 17 kg

DRUGS (4)
  1. RETROVIR [Suspect]
     Indication: HIV INFECTION
     Dosage: 240ML PER DAY
     Route: 048
     Dates: start: 20060913, end: 20070217
  2. EPIVIR [Concomitant]
     Indication: HIV INFECTION
  3. VIRAMUNE [Concomitant]
     Indication: HIV INFECTION
  4. BACTRIM [Concomitant]
     Indication: PROPHYLAXIS

REACTIONS (6)
  - BONE MARROW FAILURE [None]
  - HAEMOGLOBIN DECREASED [None]
  - NEUTROPENIA [None]
  - PNEUMOCOCCAL SEPSIS [None]
  - RETICULOCYTOPENIA [None]
  - THROMBOCYTOPENIA [None]
